FAERS Safety Report 14286662 (Version 2)
Quarter: 2017Q4

REPORT INFORMATION
  Report Type: Spontaneous
  Country: US (occurrence: US)
  Receive Date: 20171214
  Receipt Date: 20171214
  Transmission Date: 20180321
  Serious: No
  Sender: FDA-Public Use
  Company Number: US-BAUSCH-BL-2017-007657

PATIENT
  Age: 83 Year
  Sex: Female

DRUGS (2)
  1. AMIODARONE [Concomitant]
     Active Substance: AMIODARONE
     Indication: PRODUCT USED FOR UNKNOWN INDICATION
     Dates: start: 20161118
  2. GENERIC CARDIZEM [Suspect]
     Active Substance: DILTIAZEM HYDROCHLORIDE
     Indication: HYPERTENSION
     Dosage: 4 TABLETS
     Route: 065

REACTIONS (1)
  - Drug ineffective [Unknown]
